FAERS Safety Report 21559643 (Version 1)
Quarter: 2022Q4

REPORT INFORMATION
  Report Type: Spontaneous
  Country: US (occurrence: None)
  Receive Date: 20221106
  Receipt Date: 20221106
  Transmission Date: 20230112
  Serious: Yes (Hospitalization)
  Sender: FDA-Public Use
  Company Number: None

PATIENT
  Age: 75 Year
  Sex: Female
  Weight: 52.2 kg

DRUGS (2)
  1. BEBTELOVIMAB [Suspect]
     Active Substance: BEBTELOVIMAB
     Indication: COVID-19
     Dosage: FREQUENCY : ONCE;?
     Route: 042
     Dates: start: 20221020, end: 20221020
  2. BEBTELOVIMAB [Concomitant]
     Active Substance: BEBTELOVIMAB
     Dates: start: 20221020, end: 20221020

REACTIONS (3)
  - Pyrexia [None]
  - Tachycardia [None]
  - Infusion related reaction [None]

NARRATIVE: CASE EVENT DATE: 20221020
